FAERS Safety Report 5062388-0 (Version None)
Quarter: 2006Q3

REPORT INFORMATION
  Report Type: 
  Country: None (occurrence: None)
  Receive Date: 20060726
  Receipt Date: 20060725
  Transmission Date: 20061208
  Serious: Yes (Hospitalization)
  Sender: FDA-Public Use
  Company Number: FR-GLAXOSMITHKLINE-B0432100A

PATIENT
  Age: 51 Year
  Sex: Female
  Weight: 50 kg

DRUGS (1)
  1. REQUIP [Suspect]
     Dosage: .5MG PER DAY
     Route: 048
     Dates: start: 20041231, end: 20060211

REACTIONS (9)
  - ASTHENIA [None]
  - CARDIAC ARREST [None]
  - DIARRHOEA [None]
  - FALL [None]
  - MALAISE [None]
  - PALPITATIONS [None]
  - SINUS ARREST [None]
  - SYNCOPE [None]
  - VOMITING [None]
